FAERS Safety Report 6914998-0 (Version None)
Quarter: 2010Q3

REPORT INFORMATION
  Report Type: 
  Country: None (occurrence: None)
  Receive Date: 20100809
  Receipt Date: 20100802
  Transmission Date: 20110219
  Serious: Yes (Death, Other)
  Sender: FDA-Public Use
  Company Number: US-AMGEN-QUU424048

PATIENT
  Sex: Female

DRUGS (2)
  1. NPLATE [Suspect]
     Indication: IDIOPATHIC THROMBOCYTOPENIC PURPURA
     Dates: start: 20091016, end: 20091023
  2. CORTICOSTEROIDS [Concomitant]

REACTIONS (3)
  - DRUG INEFFECTIVE [None]
  - INFECTION [None]
  - MYELODYSPLASTIC SYNDROME [None]
